FAERS Safety Report 8391439-0 (Version None)
Quarter: 2012Q1

REPORT INFORMATION
  Report Type: 
  Country: None (occurrence: None)
  Receive Date: 20120323
  Receipt Date: 20111010
  Transmission Date: 20120608
  Serious: Yes (Other)
  Sender: FDA-Public Use
  Company Number: 163-21880-11042057

PATIENT
  Age: 62 Year
  Sex: Female

DRUGS (19)
  1. PREVACID (LANSOPRAZOLE) (TABLETS) [Concomitant]
  2. CALCITROL (CALCITROL) (CAPSULES) [Concomitant]
  3. VELCADE [Suspect]
     Indication: MULTIPLE MYELOMA
     Dosage: 2.2 MG, DAYS 1,  8, 15, IV
     Route: 042
     Dates: start: 20110207, end: 20110331
  4. PROAIR HFA (SALBUTAMOL SULFATE) (AEROSOL FOR INHALATION) [Concomitant]
  5. REVLIMID [Suspect]
     Indication: MULTIPLE MYELOMA
     Dosage: 10 MG, 1 IN 1 D, PO   15-25 MG, DAILY, PO   15 MG, 14 DAYS THEN OFF FOR 7 DAYS, PO
     Route: 048
     Dates: start: 20110207
  6. REVLIMID [Suspect]
     Indication: MULTIPLE MYELOMA
     Dosage: 10 MG, 1 IN 1 D, PO   15-25 MG, DAILY, PO   15 MG, 14 DAYS THEN OFF FOR 7 DAYS, PO
     Route: 048
     Dates: start: 20110201, end: 20110101
  7. REVLIMID [Suspect]
     Indication: MULTIPLE MYELOMA
     Dosage: 10 MG, 1 IN 1 D, PO   15-25 MG, DAILY, PO   15 MG, 14 DAYS THEN OFF FOR 7 DAYS, PO
     Route: 048
     Dates: start: 20110331
  8. REVLIMID [Suspect]
     Indication: MULTIPLE MYELOMA
     Dosage: 10 MG, 1 IN 1 D, PO   15-25 MG, DAILY, PO   15 MG, 14 DAYS THEN OFF FOR 7 DAYS, PO
     Route: 048
     Dates: start: 20110418, end: 20110429
  9. KCL (POTASSIUM CHLORIDE) (TABLETS) [Concomitant]
  10. PRBC (BLOOD CELLS, PACKED HUMAN) (INJECTION FOR INFUSION) [Concomitant]
  11. LOVENOX [Concomitant]
  12. PROCHLORPERAZINE MALEATE (PROCHLORPERAZINE MALEATE) (TABLETS) [Concomitant]
  13. HYDROCODONE/ACETAMINOPHEN (REMEDEINE) (TABLETS) [Concomitant]
  14. DEXAMETHASONE [Suspect]
     Indication: MULTIPLE MYELOMA
     Dosage: 40 MG, 1 IN 1 D, PO
     Route: 048
     Dates: end: 20110331
  15. LORAZEPAM [Concomitant]
  16. CIPROFLOXACIN HCL (CIPROFLOXACIN HYDROCHLORIDE) (TABLETS) [Concomitant]
  17. ACETYLCYSTEINE (ACETYLCYSTEINE) (SOLUTION) [Concomitant]
  18. METRONIDAZOLE [Concomitant]
  19. AMOXICILLIN/ POTASSIUM CLAVULANATE (AMOXICILLIN W/ CLAVULANAE POTASSIU [Concomitant]

REACTIONS (1)
  - ANAEMIA [None]
